FAERS Safety Report 9274926 (Version 1)
Quarter: 2013Q2

REPORT INFORMATION
  Report Type: Report from Study
  Country: CA (occurrence: CA)
  Receive Date: 20130507
  Receipt Date: 20130507
  Transmission Date: 20140414
  Serious: Yes (Other)
  Sender: FDA-Public Use
  Company Number: CA-JNJFOC-20130417341

PATIENT
  Sex: Female
  Weight: 88.8 kg

DRUGS (13)
  1. REMICADE [Suspect]
     Indication: PRODUCT USED FOR UNKNOWN INDICATION
     Dosage: LOADING DOSE
     Route: 042
     Dates: start: 20130214
  2. ARTHROTEC [Concomitant]
     Route: 065
  3. RABEPRAZOLE [Concomitant]
     Route: 065
  4. CLONAZEPAM [Concomitant]
     Route: 065
  5. CRESTOR [Concomitant]
     Route: 065
  6. VITAMIN D [Concomitant]
     Route: 065
  7. MAGNESIUM [Concomitant]
     Route: 065
  8. VITAMIN B12 [Concomitant]
     Route: 065
  9. EZETROL [Concomitant]
     Route: 065
  10. AMITRIPTYLINE [Concomitant]
     Route: 065
  11. ZOPICLONE [Concomitant]
     Route: 065
  12. CALCIUM [Concomitant]
     Route: 065
  13. DOCUSATE [Concomitant]
     Route: 065

REACTIONS (2)
  - Fall [Unknown]
  - Pain [Unknown]
